FAERS Safety Report 18846149 (Version 1)
Quarter: 2021Q1

REPORT INFORMATION
  Report Type: Spontaneous
  Country: PL (occurrence: PL)
  Receive Date: 20210203
  Receipt Date: 20210203
  Transmission Date: 20210419
  Serious: Yes (Hospitalization, Other)
  Sender: FDA-Public Use
  Company Number: PL-BAXTER-2021BAX001665

PATIENT
  Age: 68 Year
  Sex: Male

DRUGS (13)
  1. CIPROFLOXACIN. [Suspect]
     Active Substance: CIPROFLOXACIN
     Indication: ANTIBIOTIC PROPHYLAXIS
     Route: 048
  2. RIVAROXABAN [Suspect]
     Active Substance: RIVAROXABAN
     Indication: PRODUCT USED FOR UNKNOWN INDICATION
     Dosage: 20 MG
     Route: 065
  3. FUROSEMIDE NORAMEDA 10 MG/ML ROZTWOR DO WSTRZYKIWAN/ DO INFUZJI [Suspect]
     Active Substance: FUROSEMIDE
     Indication: PRODUCT USED FOR UNKNOWN INDICATION
     Dosage: 40 MG
     Route: 065
  4. FLUKONAZOL ROZTWOR DO INFUZJI 2MG/ML [Suspect]
     Active Substance: FLUCONAZOLE
     Indication: ANTIBIOTIC PROPHYLAXIS
     Route: 065
  5. FLUKONAZOL ROZTWOR DO INFUZJI 2MG/ML [Suspect]
     Active Substance: FLUCONAZOLE
     Indication: PRURITUS GENITAL
     Route: 065
  6. TRAZODONE [Concomitant]
     Active Substance: TRAZODONE HYDROCHLORIDE
     Indication: SLEEP DISORDER
     Dosage: 50 MG THREE HOURS BEFORE BEDTIME
     Route: 065
  7. QUETIAPINE. [Suspect]
     Active Substance: QUETIAPINE
     Indication: INSOMNIA
     Dosage: 50 MG AT BEDTIME
     Route: 065
  8. CIPROFLOXACIN. [Suspect]
     Active Substance: CIPROFLOXACIN
     Indication: PRURITUS GENITAL
     Route: 048
  9. ATORVASTATIN [Suspect]
     Active Substance: ATORVASTATIN
     Indication: PRODUCT USED FOR UNKNOWN INDICATION
     Dosage: 40 MG
     Route: 048
  10. METOPROLOL. [Suspect]
     Active Substance: METOPROLOL
     Indication: PRODUCT USED FOR UNKNOWN INDICATION
     Dosage: 100 MG
     Route: 065
  11. QUETIAPINE. [Suspect]
     Active Substance: QUETIAPINE
     Dosage: 25 MG AT BEDTIME
     Route: 065
  12. CETIRIZINE [Suspect]
     Active Substance: CETIRIZINE HYDROCHLORIDE
     Indication: PRURITUS GENITAL
     Dosage: 10 MG, QD
     Route: 065
  13. DIAZEPAM. [Suspect]
     Active Substance: DIAZEPAM
     Indication: INSOMNIA
     Dosage: 10 MG, QD HALF HOUR BEFORE BEDTIME
     Route: 065

REACTIONS (9)
  - Somnolence [Recovered/Resolved]
  - Pruritus genital [Recovered/Resolved]
  - Penis injury [Recovered/Resolved]
  - Drug interaction [Unknown]
  - Penile haemorrhage [Recovered/Resolved]
  - Drug interaction [Recovered/Resolved]
  - Condition aggravated [Recovered/Resolved]
  - Fall [Unknown]
  - Drug ineffective [Unknown]
